FAERS Safety Report 11404138 (Version 3)
Quarter: 2015Q4

REPORT INFORMATION
  Report Type: Spontaneous
  Country: JP (occurrence: JP)
  Receive Date: 20150821
  Receipt Date: 20151030
  Transmission Date: 20160304
  Serious: Yes (Life-Threatening)
  Sender: FDA-Public Use
  Company Number: JP-JNJFOC-20150811281

PATIENT
  Age: 48 Year
  Sex: Male
  Weight: 74 kg

DRUGS (8)
  1. STELARA [Suspect]
     Active Substance: USTEKINUMAB
     Indication: PSORIASIS
     Route: 058
     Dates: start: 20140425, end: 20150626
  2. EBASTINE [Concomitant]
     Active Substance: EBASTINE
     Indication: PSORIATIC ARTHROPATHY
     Route: 048
  3. EBASTINE [Concomitant]
     Active Substance: EBASTINE
     Indication: PSORIASIS
     Route: 048
  4. FEXOFENADINE [Concomitant]
     Active Substance: FEXOFENADINE\FEXOFENADINE HYDROCHLORIDE
     Indication: PSORIASIS
     Route: 048
  5. OPALMON [Concomitant]
     Active Substance: LIMAPROST
     Indication: PSORIATIC ARTHROPATHY
     Route: 048
  6. STELARA [Suspect]
     Active Substance: USTEKINUMAB
     Indication: PSORIATIC ARTHROPATHY
     Route: 058
     Dates: start: 20140425, end: 20150626
  7. FEXOFENADINE [Concomitant]
     Active Substance: FEXOFENADINE\FEXOFENADINE HYDROCHLORIDE
     Indication: PSORIATIC ARTHROPATHY
     Route: 048
  8. OPALMON [Concomitant]
     Active Substance: LIMAPROST
     Indication: PSORIASIS
     Route: 048

REACTIONS (1)
  - Dyspnoea [Recovered/Resolved]

NARRATIVE: CASE EVENT DATE: 20150626
